FAERS Safety Report 9291058 (Version 1)
Quarter: 2013Q2

REPORT INFORMATION
  Report Type: Spontaneous
  Country: GB (occurrence: None)
  Receive Date: 20130513
  Receipt Date: 20130513
  Transmission Date: 20140414
  Serious: Yes (Other)
  Sender: FDA-Public Use
  Company Number: USA/UKI/13/0029436

PATIENT
  Sex: Male

DRUGS (4)
  1. OLANZAPINE (OLANZAPINE) [Suspect]
     Indication: BIPOLAR DISORDER
     Dosage: 10MG, 1 IN 1D, TRANSPLACENTAL
     Route: 064
  2. LITHIUM (LITHIUM) UNKNOWN [Suspect]
     Indication: BIPOLAR DISORDER
     Dosage: 400MG, 2 IN 1 D, TRANSPLACENTAL
     Route: 064
  3. PROMETHAZINE (PROMETHAZINE) [Concomitant]
  4. DIAZEPAM (DIAZEPAM) [Concomitant]

REACTIONS (9)
  - Small for dates baby [None]
  - Metabolic acidosis [None]
  - Hyperinsulinaemia [None]
  - Hypoglycaemia neonatal [None]
  - Maternal drugs affecting foetus [None]
  - Foetal growth restriction [None]
  - Caesarean section [None]
  - Grunting [None]
  - Dyspnoea [None]
